FAERS Safety Report 9235586 (Version 4)
Quarter: 2013Q2

REPORT INFORMATION
  Report Type: Report from Study
  Country: US (occurrence: US)
  Receive Date: 20130417
  Receipt Date: 20130621
  Transmission Date: 20140414
  Serious: Yes (Hospitalization)
  Sender: FDA-Public Use
  Company Number: US-AMGEN-USACT2013026049

PATIENT
  Age: 70 Year
  Sex: Female
  Weight: 63.1 kg

DRUGS (10)
  1. PANITUMUMAB [Suspect]
     Indication: OVARIAN CANCER
     Dosage: 2.5 MG/M2, QWK
     Route: 042
     Dates: start: 20130327
  2. GEMCITABINE [Concomitant]
     Dosage: 800 MG/M2, Q3WK
     Route: 042
     Dates: start: 20130327
  3. METOPROLOL [Concomitant]
     Dosage: 50 MG, QD
     Route: 048
     Dates: start: 20120106
  4. TYLENOL [Concomitant]
     Dosage: UNK UNK, AS NECESSARY
     Route: 048
  5. MIRALAX [Concomitant]
     Dosage: 527 G, AS NECESSARY
     Route: 048
     Dates: start: 20120705
  6. MULTIVITAMIN [Concomitant]
     Dosage: UNK UNK, QD
     Route: 048
     Dates: start: 20120705
  7. COMPAZINE [Concomitant]
     Dosage: 10 MG, AS NECESSARY
     Route: 048
     Dates: start: 20120920
  8. PRILOSEC [Concomitant]
     Dosage: UNK UNK, QD
     Route: 048
     Dates: start: 20130117
  9. COUMADIN [Concomitant]
     Dosage: 5 MG, UNK
     Route: 048
     Dates: start: 20120712
  10. HYDROCHLOROTHIAZIDE [Concomitant]
     Dosage: 25 MG, QD
     Route: 048
     Dates: start: 20130408

REACTIONS (3)
  - Embolism [Recovered/Resolved]
  - Platelet count decreased [Recovered/Resolved]
  - Anaemia [Recovered/Resolved]
